FAERS Safety Report 23241077 (Version 1)
Quarter: 2023Q4

REPORT INFORMATION
  Report Type: Spontaneous
  Country: ES (occurrence: ES)
  Receive Date: 20231129
  Receipt Date: 20231129
  Transmission Date: 20240110
  Serious: Yes (Other)
  Sender: FDA-Public Use
  Company Number: ES-MYLANLABS-2023M1123656

PATIENT
  Age: 64 Year
  Sex: Male

DRUGS (8)
  1. RISPERIDONE [Suspect]
     Active Substance: RISPERIDONE
     Indication: Intellectual disability
     Dosage: 12 MILLIGRAM, QD
     Route: 065
  2. QUETIAPINE [Suspect]
     Active Substance: QUETIAPINE
     Indication: Intellectual disability
     Dosage: 900 MILLIGRAM, QD
     Route: 065
  3. OXCARBAZEPINE [Suspect]
     Active Substance: OXCARBAZEPINE
     Indication: Impulsive behaviour
     Dosage: 30 MILLIGRAM, QD
     Route: 065
  4. OXCARBAZEPINE [Suspect]
     Active Substance: OXCARBAZEPINE
     Dosage: 600 MILLIGRAM, QD
     Route: 065
  5. LEVOMEPROMAZINE [Suspect]
     Active Substance: LEVOMEPROMAZINE
     Indication: Intellectual disability
     Dosage: 100 MILLIGRAM, QD
     Route: 065
  6. DIAZEPAM [Concomitant]
     Active Substance: DIAZEPAM
     Indication: Intellectual disability
     Dosage: 10 MILLIGRAM, QD
     Route: 065
  7. BIPERIDEN [Concomitant]
     Active Substance: BIPERIDEN
     Indication: Intellectual disability
     Dosage: 8 MILLIGRAM, QD
     Route: 065
  8. TOPIRAMATE [Concomitant]
     Active Substance: TOPIRAMATE
     Indication: Intellectual disability
     Dosage: 100 MILLIGRAM, QD
     Route: 065

REACTIONS (5)
  - Hyponatraemia [Recovered/Resolved]
  - Off label use [Unknown]
  - Aggression [Recovered/Resolved]
  - Hyperphagia [Unknown]
  - Musculoskeletal stiffness [Unknown]
